FAERS Safety Report 8954646 (Version 3)
Quarter: 2013Q2

REPORT INFORMATION
  Report Type: Spontaneous
  Country: GB (occurrence: GB)
  Receive Date: 20121207
  Receipt Date: 20130426
  Transmission Date: 20140414
  Serious: Yes (Hospitalization)
  Sender: FDA-Public Use
  Company Number: GB-ABBOTT-12P-167-1015652-00

PATIENT
  Age: 44 Year
  Sex: Male
  Weight: 120 kg

DRUGS (7)
  1. KLARICID [Suspect]
     Indication: HELICOBACTER INFECTION
     Route: 048
     Dates: start: 20120928, end: 20121004
  2. CANDESARTAN [Concomitant]
     Indication: HYPERTENSION
     Route: 048
     Dates: start: 20090701
  3. METFORMIN [Concomitant]
     Indication: TYPE 2 DIABETES MELLITUS
     Route: 048
     Dates: start: 20050907
  4. OMEPRAZOLE [Concomitant]
     Indication: DUODENAL ULCER
     Route: 048
     Dates: start: 20110808
  5. SIMVASTATIN [Concomitant]
     Indication: BLOOD CHOLESTEROL INCREASED
     Dosage: 1 NOCTE
     Route: 048
     Dates: start: 20050907
  6. SIMVASTATIN [Concomitant]
     Indication: TYPE 2 DIABETES MELLITUS
  7. AMOXICILLIN [Concomitant]
     Indication: HELICOBACTER INFECTION
     Route: 048
     Dates: start: 20120928, end: 20121004

REACTIONS (8)
  - Syncope [Recovered/Resolved]
  - Confusional state [Recovered/Resolved]
  - Convulsion [Recovered/Resolved]
  - Unevaluable event [Recovered/Resolved]
  - Dyspnoea [Recovered/Resolved]
  - Palpitations [Recovered/Resolved]
  - Incorrect dose administered [Unknown]
  - Tremor [Recovered/Resolved]
